FAERS Safety Report 24599755 (Version 2)
Quarter: 2024Q4

REPORT INFORMATION
  Report Type: Spontaneous
  Country: US (occurrence: US)
  Receive Date: 20241110
  Receipt Date: 20241110
  Transmission Date: 20250115
  Serious: Yes (Hospitalization)
  Sender: SANOFI AVENTIS
  Company Number: US-SA-2024SA313006

PATIENT
  Age: 72 Year
  Sex: Female
  Weight: 118.14 kg

DRUGS (1)
  1. DUPIXENT [Suspect]
     Active Substance: DUPILUMAB
     Indication: Neurodermatitis
     Dosage: 300 MG, QOW
     Route: 058
     Dates: start: 202402, end: 2024

REACTIONS (5)
  - Hospitalisation [Unknown]
  - Chronic obstructive pulmonary disease [Unknown]
  - Neurodermatitis [Unknown]
  - Skin ulcer [Unknown]
  - Drug ineffective [Unknown]

NARRATIVE: CASE EVENT DATE: 20240101
